FAERS Safety Report 9246083 (Version 2)
Quarter: 2013Q2

REPORT INFORMATION
  Report Type: Report from Study
  Country: IE (occurrence: IE)
  Receive Date: 20130422
  Receipt Date: 20130520
  Transmission Date: 20140414
  Serious: Yes (Hospitalization)
  Sender: FDA-Public Use
  Company Number: IE-ASTRAZENECA-2013SE13053

PATIENT
  Sex: Male

DRUGS (3)
  1. SYNAGIS [Suspect]
     Indication: HEART DISEASE CONGENITAL
     Route: 030
     Dates: start: 20121114, end: 20130328
  2. CAPTOPRIL [Concomitant]
  3. CARVEDILOL [Concomitant]

REACTIONS (2)
  - Lower respiratory tract infection [Unknown]
  - Cough [Recovered/Resolved]
